FAERS Safety Report 5195139-X (Version None)
Quarter: 2006Q4

REPORT INFORMATION
  Report Type: 
  Country: None (occurrence: None)
  Receive Date: 20061229
  Receipt Date: 20061129
  Transmission Date: 20070319
  Serious: Yes (Other)
  Sender: FDA-Public Use
  Company Number: JP-PFIZER INC-2006148148

PATIENT
  Age: 11 Year
  Sex: Female

DRUGS (14)
  1. SOLU-MEDROL [Suspect]
     Dosage: DAILY DOSE:1GRAM
     Route: 042
     Dates: start: 20061120, end: 20061122
  2. SOLDEM 1 [Concomitant]
     Route: 042
  3. ROCEPHIN [Concomitant]
     Route: 042
     Dates: start: 20061118
  4. SULPYRINE [Concomitant]
     Dates: start: 20061118
  5. ELASPOL [Concomitant]
     Route: 042
     Dates: start: 20061118
  6. MIDAZOLAM HYDROCHLORIDE [Concomitant]
     Route: 042
     Dates: start: 20061118
  7. FRAGMIN [Concomitant]
     Route: 042
     Dates: start: 20061119
  8. GASTER [Concomitant]
     Dates: start: 20061118
  9. MORPHINE [Concomitant]
     Dates: start: 20061119
  10. ANTITHROMBIN III [Concomitant]
     Route: 042
     Dates: start: 20061119
  11. NEO-MINOPHAGEN C [Concomitant]
     Route: 042
     Dates: start: 20061120
  12. TATHION [Concomitant]
     Dates: start: 20061120
  13. DECADRON [Concomitant]
     Route: 055
  14. BOSMIN [Concomitant]
     Route: 042

REACTIONS (1)
  - DELIRIUM [None]
